FAERS Safety Report 7542246-X (Version None)
Quarter: 2011Q2

REPORT INFORMATION
  Report Type: 
  Country: None (occurrence: None)
  Receive Date: 20110613
  Receipt Date: 20110607
  Transmission Date: 20111010
  Serious: Yes (Hospitalization, Other)
  Sender: FDA-Public Use
  Company Number: FR-PFIZER INC-2011123075

PATIENT
  Age: 83 Year
  Sex: Female

DRUGS (10)
  1. GLUCOPHAGE [Concomitant]
     Dosage: 1000
     Dates: end: 20110526
  2. IMOVANE [Concomitant]
     Dosage: UNK
     Dates: end: 20110526
  3. AUGMENTIN '125' [Suspect]
     Dosage: 1 G, 3X/DAY
     Dates: start: 20110523, end: 20110526
  4. PAROXETINE HCL [Concomitant]
     Dosage: 20
     Dates: end: 20110526
  5. OMEPRAZOLE [Concomitant]
     Dosage: 20
  6. SOLU-MEDROL [Suspect]
     Dosage: 40 MG, 1X/DAY
     Route: 042
     Dates: start: 20110525, end: 20110526
  7. LEVOTHYROXINE SODIUM [Concomitant]
     Dosage: 100
  8. NEXIUM [Concomitant]
  9. LASIX [Suspect]
     Dosage: UNK
  10. ACETAMINOPHEN [Concomitant]
     Dosage: UNK
     Dates: end: 20110526

REACTIONS (3)
  - ATRIAL FIBRILLATION [None]
  - CYTOLYTIC HEPATITIS [None]
  - CARDIAC FAILURE [None]
